FAERS Safety Report 20623094 (Version 1)
Quarter: 2022Q1

REPORT INFORMATION
  Report Type: Spontaneous
  Country: US (occurrence: US)
  Receive Date: 20220322
  Receipt Date: 20220322
  Transmission Date: 20220423
  Serious: No
  Sender: FDA-Public Use
  Company Number: US-ALLERGAN-2117809US

PATIENT
  Sex: Female

DRUGS (6)
  1. LATISSE [Suspect]
     Active Substance: BIMATOPROST
     Indication: Product used for unknown indication
     Dosage: 2 GTT, QPM
     Route: 061
     Dates: start: 20210429
  2. Unspecified hormone cream [Concomitant]
  3. VITAMINS [Concomitant]
     Active Substance: VITAMINS
  4. VITAMIN B12 [Concomitant]
     Active Substance: CYANOCOBALAMIN
  5. VITAMIN D NOS [Concomitant]
     Active Substance: VITAMIN D NOS
  6. BUPROPION [Concomitant]
     Active Substance: BUPROPION

REACTIONS (4)
  - Incorrect dose administered [Unknown]
  - Eye swelling [Recovered/Resolved]
  - Ocular hyperaemia [Recovering/Resolving]
  - Eye discharge [Recovering/Resolving]

NARRATIVE: CASE EVENT DATE: 20210502
